FAERS Safety Report 18723931 (Version 11)
Quarter: 2024Q3

REPORT INFORMATION
  Report Type: Report from Study
  Country: DE (occurrence: DE)
  Receive Date: 20210111
  Receipt Date: 20240830
  Transmission Date: 20241017
  Serious: No
  Sender: ROCHE
  Company Number: None

PATIENT
  Age: 40 Year
  Sex: Female

DRUGS (23)
  1. OCREVUS [Suspect]
     Active Substance: OCRELIZUMAB
     Indication: Relapsing-remitting multiple sclerosis
     Dosage: FREQUENCY TEXT:DAY 1, 15
     Route: 042
     Dates: start: 20190822
  2. OCREVUS [Suspect]
     Active Substance: OCRELIZUMAB
     Route: 042
     Dates: start: 20200625
  3. OCREVUS [Suspect]
     Active Substance: OCRELIZUMAB
     Route: 042
     Dates: start: 20190905
  4. OCREVUS [Suspect]
     Active Substance: OCRELIZUMAB
     Route: 042
     Dates: start: 20210202
  5. OCREVUS [Suspect]
     Active Substance: OCRELIZUMAB
     Route: 042
     Dates: start: 20190822, end: 20230921
  6. COMIRNATY (TOZINAMERAN) [Suspect]
     Active Substance: TOZINAMERAN
     Indication: Premedication
     Dosage: UNK
     Route: 065
  7. COMIRNATY (TOZINAMERAN) [Suspect]
     Active Substance: TOZINAMERAN
     Indication: Product used for unknown indication
     Route: 065
  8. COMIRNATY (TOZINAMERAN) [Suspect]
     Active Substance: TOZINAMERAN
     Route: 065
  9. CORTISONE [Suspect]
     Active Substance: CORTISONE
     Indication: Premedication
     Dosage: UNK
     Route: 065
  10. CORTISONE [Suspect]
     Active Substance: CORTISONE
     Route: 065
  11. CORTISONE [Suspect]
     Active Substance: CORTISONE
     Route: 065
  12. DESOGESTREL [Suspect]
     Active Substance: DESOGESTREL
     Indication: Contraception
     Route: 065
  13. DESOGESTREL [Suspect]
     Active Substance: DESOGESTREL
     Dosage: UNK; START DATE: 15-NOV-2019
     Route: 065
  14. AZITHROMYCIN [Suspect]
     Active Substance: AZITHROMYCIN
     Indication: Influenza like illness
     Route: 065
  15. AZITHROMYCIN [Suspect]
     Active Substance: AZITHROMYCIN
     Indication: Pyrexia
  16. CHOLECALCIFEROL [Concomitant]
     Active Substance: CHOLECALCIFEROL
     Indication: Product used for unknown indication
     Dosage: 2000 DF
     Route: 065
  17. CHOLECALCIFEROL [Concomitant]
     Active Substance: CHOLECALCIFEROL
  18. CHOLECALCIFEROL [Concomitant]
     Active Substance: CHOLECALCIFEROL
  19. CHOLECALCIFEROL [Concomitant]
     Active Substance: CHOLECALCIFEROL
  20. PROPIVERINE HYDROCHLORIDE [Concomitant]
     Active Substance: PROPIVERINE HYDROCHLORIDE
     Indication: Product used for unknown indication
     Dosage: 30 MG
     Route: 065
  21. PROPIVERINE HYDROCHLORIDE [Concomitant]
     Active Substance: PROPIVERINE HYDROCHLORIDE
  22. PROPIVERINE HYDROCHLORIDE [Concomitant]
     Active Substance: PROPIVERINE HYDROCHLORIDE
  23. NITROFURANTOIN [Concomitant]
     Active Substance: NITROFURANTOIN
     Indication: Product used for unknown indication
     Dosage: UNK
     Route: 065

REACTIONS (25)
  - Fatigue [Recovered/Resolved]
  - Platelet count increased [Not Recovered/Not Resolved]
  - Asthenia [Not Recovered/Not Resolved]
  - Anosmia [Unknown]
  - Sinusitis [Recovered/Resolved]
  - Fluid retention [Recovered/Resolved]
  - Back pain [Recovered/Resolved]
  - Blood immunoglobulin G decreased [Not Recovered/Not Resolved]
  - COVID-19 [Recovered/Resolved]
  - Ageusia [Unknown]
  - Pain in extremity [Recovered/Resolved]
  - Diarrhoea [Recovered/Resolved]
  - Body temperature increased [Recovered/Resolved]
  - Muscle spasticity [Recovered/Resolved]
  - Laryngitis [Recovering/Resolving]
  - Lactose intolerance [Not Recovered/Not Resolved]
  - Cough [Recovered/Resolved]
  - Influenza [Recovered/Resolved]
  - Cystitis noninfective [Recovered/Resolved]
  - Pyrexia [Recovered/Resolved]
  - Hypotension [Unknown]
  - SARS-CoV-2 antibody test positive [Recovered/Resolved]
  - Bacterial infection [Unknown]
  - Nasopharyngitis [Recovered/Resolved]
  - Intermenstrual bleeding [Recovered/Resolved]

NARRATIVE: CASE EVENT DATE: 20190822
